FAERS Safety Report 16431164 (Version 8)
Quarter: 2020Q2

REPORT INFORMATION
  Report Type: Spontaneous
  Country: US (occurrence: US)
  Receive Date: 20190614
  Receipt Date: 20200610
  Transmission Date: 20200713
  Serious: Yes (Other)
  Sender: FDA-Public Use
  Company Number: US-PFIZER INC-2019248149

PATIENT
  Age: 84 Year
  Sex: Female
  Weight: 55 kg

DRUGS (5)
  1. IBRANCE [Suspect]
     Active Substance: PALBOCICLIB
     Indication: BREAST CANCER FEMALE
     Dosage: 125 MG, CYCLIC [3 WEEKS BY MOUTH AND 1 WEEK OFF]
     Route: 048
  2. IBRANCE [Suspect]
     Active Substance: PALBOCICLIB
     Dosage: 125 MG, DAILY
  3. IBRANCE [Suspect]
     Active Substance: PALBOCICLIB
     Dosage: 100 MG
     Route: 048
     Dates: start: 20191212
  4. EXEMESTANE. [Concomitant]
     Active Substance: EXEMESTANE
     Dosage: UNK
  5. LIPITOR [Concomitant]
     Active Substance: ATORVASTATIN CALCIUM
     Dosage: UNK

REACTIONS (15)
  - Limb injury [Unknown]
  - Upper limb fracture [Unknown]
  - Dry mouth [Recovered/Resolved]
  - Ear pain [Unknown]
  - Cervical vertebral fracture [Unknown]
  - Oropharyngeal discomfort [Not Recovered/Not Resolved]
  - Musculoskeletal pain [Unknown]
  - Eye pain [Unknown]
  - Diarrhoea [Unknown]
  - Fall [Unknown]
  - Hair growth abnormal [Unknown]
  - Peripheral swelling [Unknown]
  - Mobility decreased [Unknown]
  - Speech disorder [Unknown]
  - Facial pain [Unknown]

NARRATIVE: CASE EVENT DATE: 2019
